FAERS Safety Report 24171229 (Version 1)
Quarter: 2024Q3

REPORT INFORMATION
  Report Type: Report from Study
  Country: US (occurrence: US)
  Receive Date: 20240805
  Receipt Date: 20240805
  Transmission Date: 20241017
  Serious: No
  Sender: RANBAXY
  Company Number: US-SUN PHARMACEUTICAL INDUSTRIES LTD-2023R1-416423

PATIENT
  Sex: Female

DRUGS (1)
  1. SONIDEGIB [Interacting]
     Active Substance: SONIDEGIB
     Indication: Basal cell carcinoma
     Dosage: 200 MILLIGRAM, QD, ON AN EMPTY STOMACH
     Route: 065

REACTIONS (1)
  - Drug interaction [Unknown]
